FAERS Safety Report 9384065 (Version 1)
Quarter: 2013Q3

REPORT INFORMATION
  Report Type: Spontaneous
  Country: GB (occurrence: GB)
  Receive Date: 20130705
  Receipt Date: 20130705
  Transmission Date: 20140515
  Serious: Yes (Death)
  Sender: FDA-Public Use
  Company Number: GB-JNJFOC-20090905871

PATIENT
  Age: 37 Year
  Sex: Male

DRUGS (4)
  1. RISPERDAL CONSTA [Suspect]
     Indication: SCHIZOPHRENIA
     Route: 030
  2. RISPERDAL ORAL [Suspect]
     Indication: SCHIZOPHRENIA
     Route: 048
  3. RISPERDAL ORAL [Suspect]
     Indication: SCHIZOPHRENIA
     Route: 048
  4. RISPERDAL ORAL [Suspect]
     Indication: SCHIZOPHRENIA
     Route: 048

REACTIONS (2)
  - Completed suicide [Fatal]
  - Sleep disorder [Not Recovered/Not Resolved]
